FAERS Safety Report 14342849 (Version 1)
Quarter: 2018Q1

REPORT INFORMATION
  Report Type: Spontaneous
  Country: US (occurrence: US)
  Receive Date: 20180102
  Receipt Date: 20180102
  Transmission Date: 20180509
  Serious: Yes (Life-Threatening, Hospitalization, Other)
  Sender: FDA-Public Use
  Company Number: US-GLAXOSMITHKLINE-US2017201760

PATIENT
  Age: 47 Year
  Sex: Female

DRUGS (2)
  1. ALPRAZOLAM. [Concomitant]
     Active Substance: ALPRAZOLAM
     Indication: PRODUCT USED FOR UNKNOWN INDICATION
     Dosage: UNK
  2. BUPROPION. [Suspect]
     Active Substance: BUPROPION
     Indication: PRODUCT USED FOR UNKNOWN INDICATION
     Dosage: UNKNOWN QUANTITY OF EXTENDED-RELEASE 150 MG BUPROPION TABLETS
     Route: 048

REACTIONS (10)
  - Cardiac arrest [Recovered/Resolved]
  - Hypotension [Recovered/Resolved]
  - Lethargy [Recovered/Resolved]
  - Coma [Recovered/Resolved]
  - Electrocardiogram QRS complex prolonged [Recovered/Resolved]
  - Status epilepticus [Recovered/Resolved]
  - Areflexia [Recovered/Resolved]
  - Pupillary reflex impaired [Recovered/Resolved]
  - Sinus tachycardia [Recovered/Resolved]
  - Intentional overdose [Unknown]
